FAERS Safety Report 6034891-8 (Version None)
Quarter: 2009Q1

REPORT INFORMATION
  Report Type: 
  Country: None (occurrence: None)
  Receive Date: 20090108
  Receipt Date: 20090108
  Transmission Date: 20090719
  Serious: Yes (Hospitalization)
  Sender: FDA-Public Use
  Company Number: None

PATIENT
  Sex: Male
  Weight: 81.6475 kg

DRUGS (1)
  1. BONIVA [Suspect]
     Indication: OSTEOPENIA
     Dosage: 1 PER MONTH PO
     Route: 048
     Dates: start: 20081114, end: 20081114

REACTIONS (8)
  - DYSPNOEA EXERTIONAL [None]
  - ERYTHEMA [None]
  - LETHARGY [None]
  - PRURITUS [None]
  - PULMONARY EMBOLISM [None]
  - RASH [None]
  - SKIN LESION [None]
  - URTICARIA [None]
